FAERS Safety Report 19490518 (Version 1)
Quarter: 2021Q3

REPORT INFORMATION
  Report Type: Spontaneous
  Country: US (occurrence: US)
  Receive Date: 20210705
  Receipt Date: 20210705
  Transmission Date: 20211014
  Serious: No
  Sender: FDA-Public Use
  Company Number: NVSC2021US142662

PATIENT
  Sex: Female

DRUGS (1)
  1. TEGRETOL [Suspect]
     Active Substance: CARBAMAZEPINE
     Indication: FOETAL EXPOSURE DURING PREGNANCY
     Dosage: MATERNAL EXPOSURE DURING PREGNANCY:  200 MG, QD
     Route: 064

REACTIONS (3)
  - Musculoskeletal disorder [Unknown]
  - Foetal exposure during pregnancy [Unknown]
  - Spinal stenosis [Unknown]
